FAERS Safety Report 14263805 (Version 1)
Quarter: 2017Q4

REPORT INFORMATION
  Report Type: Spontaneous
  Country: US (occurrence: US)
  Receive Date: 20171208
  Receipt Date: 20171208
  Transmission Date: 20180321
  Serious: Yes (Other)
  Sender: FDA-Public Use
  Company Number: US-KITE, A GILEAD COMPANY-2036945

PATIENT
  Age: 71 Year
  Sex: Male

DRUGS (1)
  1. YESCARTA [Suspect]
     Active Substance: AXICABTAGENE CILOLEUCEL
     Indication: PRODUCT USED FOR UNKNOWN INDICATION
     Route: 042
     Dates: start: 20171127, end: 20171127

REACTIONS (2)
  - Product odour abnormal [Unknown]
  - Infusion site reaction [Recovered/Resolved]

NARRATIVE: CASE EVENT DATE: 20171127
